FAERS Safety Report 9318418 (Version 1)
Quarter: 2013Q2

REPORT INFORMATION
  Report Type: Spontaneous
  Country: GB (occurrence: None)
  Receive Date: 20130523
  Receipt Date: 20130523
  Transmission Date: 20140414
  Serious: Yes (Other)
  Sender: FDA-Public Use
  Company Number: KAD201305-000581

PATIENT
  Age: 66 Year
  Sex: Female

DRUGS (3)
  1. RIBAVIRIN (RIBAVIRIN) [Suspect]
     Indication: HEPATITIS C
     Route: 048
     Dates: start: 20121014
  2. PEGINTERFERON ALFA-2B (PEGINTERFERON ALFA-2B) [Suspect]
     Indication: HEPATITIS C
     Dosage: ONCE WEEKLY, INJECTION
     Dates: start: 20121014
  3. INCIVO (TELAPREVIR) [Suspect]
     Indication: HEPATITIS C
     Dosage: ONE DOSAGE FOR THRICE DAILY
     Route: 048
     Dates: start: 20121014

REACTIONS (4)
  - Anaemia [None]
  - Fatigue [None]
  - Nausea [None]
  - Feeling abnormal [None]
